FAERS Safety Report 12187590 (Version 12)
Quarter: 2019Q2

REPORT INFORMATION
  Report Type: Spontaneous
  Country: US (occurrence: US)
  Receive Date: 20160317
  Receipt Date: 20190410
  Transmission Date: 20190711
  Serious: Yes (Hospitalization)
  Sender: FDA-Public Use
  Company Number: US-ASTRAZENECA-2016SE26756

PATIENT
  Age: 70 Year
  Sex: Female

DRUGS (20)
  1. TAGRISSO [Suspect]
     Active Substance: OSIMERTINIB
     Indication: BONE CANCER
     Route: 048
     Dates: start: 20160219
  2. XGEVA [Concomitant]
     Active Substance: DENOSUMAB
  3. CALCIUM [Concomitant]
     Active Substance: CALCIUM
  4. TAGRISSO [Suspect]
     Active Substance: OSIMERTINIB
     Indication: LUNG CARCINOMA CELL TYPE UNSPECIFIED RECURRENT
     Route: 048
     Dates: start: 20160218
  5. FOLIC ACID. [Concomitant]
     Active Substance: FOLIC ACID
  6. MIRALAX [Concomitant]
     Active Substance: POLYETHYLENE GLYCOL 3350
  7. TAGRISSO [Suspect]
     Active Substance: OSIMERTINIB
     Indication: BONE CANCER
     Route: 048
     Dates: start: 20160218
  8. MAGNESIUM OXIDE. [Concomitant]
     Active Substance: MAGNESIUM OXIDE
  9. SENNA/SENNA PLUS [Concomitant]
  10. ZANTAC [Concomitant]
     Active Substance: RANITIDINE HYDROCHLORIDE
  11. OMEGA 3 [Concomitant]
     Active Substance: OMEGA-3 FATTY ACIDS
  12. MULTIVITAMIN [Concomitant]
     Active Substance: VITAMINS
  13. VITAMIN C [Concomitant]
     Active Substance: ASCORBIC ACID
  14. TAGRISSO [Suspect]
     Active Substance: OSIMERTINIB
     Indication: LUNG CARCINOMA CELL TYPE UNSPECIFIED RECURRENT
     Route: 048
     Dates: start: 20160219
  15. LISINOPRIL. [Suspect]
     Active Substance: LISINOPRIL
     Route: 048
  16. LORAZEPAM. [Concomitant]
     Active Substance: LORAZEPAM
  17. ASPIRIN/GOODSENSE ASPIRIN [Concomitant]
  18. BACLOFEN. [Concomitant]
     Active Substance: BACLOFEN
  19. PROBIOTIC [Concomitant]
     Active Substance: PROBIOTICS NOS
  20. LORAZEPAM. [Concomitant]
     Active Substance: LORAZEPAM

REACTIONS (19)
  - Dry throat [Unknown]
  - Product dose omission [Unknown]
  - Dry eye [Recovered/Resolved]
  - Fatigue [Unknown]
  - Genital herpes [Unknown]
  - Skin reaction [Unknown]
  - Off label use [Unknown]
  - Blood creatinine increased [Unknown]
  - Oropharyngeal pain [Unknown]
  - Dry skin [Unknown]
  - Rash [Unknown]
  - Product use in unapproved indication [Unknown]
  - Muscle spasms [Not Recovered/Not Resolved]
  - Malaise [Unknown]
  - Sneezing [Unknown]
  - Large intestinal obstruction [Recovered/Resolved]
  - Confusional state [Unknown]
  - Acne [Unknown]
  - Rhinorrhoea [Unknown]

NARRATIVE: CASE EVENT DATE: 20160301
